FAERS Safety Report 5362517-5 (Version None)
Quarter: 2007Q2

REPORT INFORMATION
  Report Type: 
  Country: None (occurrence: None)
  Receive Date: 20070619
  Receipt Date: 20070605
  Transmission Date: 20071010
  Serious: Yes (Hospitalization)
  Sender: FDA-Public Use
  Company Number: US-SHR-US-2004-032189

PATIENT
  Age: 34 Year
  Sex: Female

DRUGS (5)
  1. BETASERON [Suspect]
     Indication: MULTIPLE SCLEROSIS
     Dosage: 4 MIU, EVERY 2D
     Route: 058
     Dates: start: 20040330
  2. REMERON [Concomitant]
     Indication: DEPRESSION
     Dosage: 15 MG, 1X/DAY
     Route: 048
  3. VITAMIN CAP [Concomitant]
  4. NORTREL                                 /BRA/ [Concomitant]
  5. EFFEXOR XR [Concomitant]
     Dosage: 75 MG, EVERY 8H
     Route: 048

REACTIONS (14)
  - ACUTE RESPIRATORY FAILURE [None]
  - DRUG SCREEN POSITIVE [None]
  - ENCEPHALOPATHY [None]
  - HAEMATURIA [None]
  - HYPOCALCAEMIA [None]
  - HYPOKALAEMIA [None]
  - HYPOPHOSPHATAEMIA [None]
  - METABOLIC ACIDOSIS [None]
  - NORMOCHROMIC NORMOCYTIC ANAEMIA [None]
  - PNEUMONIA ASPIRATION [None]
  - STATUS EPILEPTICUS [None]
  - THROMBOCYTHAEMIA [None]
  - TRANSAMINASES INCREASED [None]
  - URINARY TRACT INFECTION [None]
